FAERS Safety Report 19943276 (Version 5)
Quarter: 2022Q4

REPORT INFORMATION
  Report Type: Spontaneous
  Country: JP (occurrence: JP)
  Receive Date: 20211012
  Receipt Date: 20221007
  Transmission Date: 20230112
  Serious: Yes (Hospitalization, Other)
  Sender: FDA-Public Use
  Company Number: JP-GLAXOSMITHKLINE-JP2021JPN166569

PATIENT

DRUGS (21)
  1. BENLYSTA [Suspect]
     Active Substance: BELIMUMAB
     Indication: Systemic lupus erythematosus
     Dosage: 520 MG, SINGLE
     Route: 042
     Dates: start: 20210602, end: 20210602
  2. BENLYSTA [Suspect]
     Active Substance: BELIMUMAB
     Dosage: 520 MG, SINGLE
     Route: 042
     Dates: start: 20210616, end: 20210616
  3. BENLYSTA [Suspect]
     Active Substance: BELIMUMAB
     Dosage: 520 MG, SINGLE
     Route: 042
     Dates: start: 20210629, end: 20210629
  4. TACROLIMUS [Suspect]
     Active Substance: TACROLIMUS
     Indication: Systemic lupus erythematosus
     Dosage: 3 MG
     Route: 048
     Dates: start: 20090501, end: 20210730
  5. METHYLPREDNISOLONE [Suspect]
     Active Substance: METHYLPREDNISOLONE
     Indication: Systemic lupus erythematosus
     Dosage: 500 MG
     Dates: start: 20210520, end: 20210522
  6. METHYLPREDNISOLONE [Suspect]
     Active Substance: METHYLPREDNISOLONE
     Dosage: 40 MG, 1D
     Route: 048
     Dates: start: 20210523, end: 20210605
  7. METHYLPREDNISOLONE [Suspect]
     Active Substance: METHYLPREDNISOLONE
     Dosage: 36 MG, 1D
     Route: 048
     Dates: start: 20210606, end: 20210612
  8. METHYLPREDNISOLONE [Suspect]
     Active Substance: METHYLPREDNISOLONE
     Dosage: 32 MG, 1D
     Route: 048
     Dates: start: 20210613, end: 20210619
  9. METHYLPREDNISOLONE [Suspect]
     Active Substance: METHYLPREDNISOLONE
     Dosage: 28 MG, 1D
     Route: 048
     Dates: start: 20210620, end: 20210626
  10. METHYLPREDNISOLONE [Suspect]
     Active Substance: METHYLPREDNISOLONE
     Dosage: 24 MG, 1D
     Route: 048
     Dates: start: 20210627, end: 20210710
  11. METHYLPREDNISOLONE [Suspect]
     Active Substance: METHYLPREDNISOLONE
     Dosage: 20 MG, 1D
     Route: 048
     Dates: start: 20210711, end: 20210716
  12. METHYLPREDNISOLONE [Suspect]
     Active Substance: METHYLPREDNISOLONE
     Dosage: 18 MG, 1D
     Route: 048
     Dates: start: 20210717, end: 20210723
  13. METHYLPREDNISOLONE [Suspect]
     Active Substance: METHYLPREDNISOLONE
     Dosage: 16 MG, 1D
     Route: 048
     Dates: start: 20210724, end: 20210730
  14. MYCOPHENOLATE MOFETIL [Suspect]
     Active Substance: MYCOPHENOLATE MOFETIL
     Indication: Systemic lupus erythematosus
     Dosage: 1000 MG
     Route: 048
     Dates: start: 20210529, end: 2021
  15. MYCOPHENOLATE MOFETIL [Suspect]
     Active Substance: MYCOPHENOLATE MOFETIL
     Dosage: GRADUALLY INCREASED
     Route: 048
     Dates: start: 2021, end: 2021
  16. MYCOPHENOLATE MOFETIL [Suspect]
     Active Substance: MYCOPHENOLATE MOFETIL
     Dosage: 2000 MG
     Route: 048
     Dates: start: 2021, end: 20210730
  17. GANCICLOVIR [Suspect]
     Active Substance: GANCICLOVIR
     Indication: Cytomegalovirus enterocolitis
     Dosage: 125 MG, 1D
     Dates: start: 20210730, end: 20210803
  18. GANCICLOVIR [Suspect]
     Active Substance: GANCICLOVIR
     Dosage: 250 MG, 1D
     Dates: start: 20210804, end: 20210822
  19. FUROSEMIDE [Concomitant]
     Active Substance: FUROSEMIDE
     Indication: Oedema
     Dosage: 60 MG
     Route: 048
     Dates: start: 20210529
  20. HEPARIN SODIUM [Concomitant]
     Active Substance: HEPARIN SODIUM
     Indication: Thrombosis
     Dosage: 10000 IU
     Route: 041
     Dates: start: 20210517, end: 20210608
  21. SULFAMETHOXAZOLE\TRIMETHOPRIM [Concomitant]
     Active Substance: SULFAMETHOXAZOLE\TRIMETHOPRIM
     Indication: Prophylaxis
     Dosage: UNK

REACTIONS (9)
  - Cytomegalovirus enterocolitis [Recovered/Resolved]
  - Anal ulcer [Recovered/Resolved]
  - Haematochezia [Recovered/Resolved]
  - Dehydration [Recovered/Resolved]
  - Large intestine erosion [Recovered/Resolved]
  - Platelet count decreased [Recovered/Resolved]
  - Diarrhoea [Recovered/Resolved]
  - Prescribed overdose [Unknown]
  - Inappropriate schedule of product administration [Unknown]

NARRATIVE: CASE EVENT DATE: 20210616
